FAERS Safety Report 4788794-7 (Version None)
Quarter: 2005Q4

REPORT INFORMATION
  Report Type: 
  Country: None (occurrence: None)
  Receive Date: 20051004
  Receipt Date: 20050923
  Transmission Date: 20060501
  Serious: Yes (Other)
  Sender: FDA-Public Use
  Company Number: HQWYE634826SEP05

PATIENT
  Age: 43 Year
  Sex: Female

DRUGS (6)
  1. EFFEXOR XR [Suspect]
     Indication: HOT FLUSH
     Dosage: SEE IMAGE
     Route: 048
     Dates: end: 20050720
  2. EFFEXOR XR [Suspect]
     Indication: HOT FLUSH
     Dosage: SEE IMAGE
     Route: 048
     Dates: start: 20040501
  3. WARFARIN SODIUM [Concomitant]
  4. SOMAC (PANTOPRAZOLE) [Concomitant]
  5. PERMAX [Concomitant]
  6. MULTIVITAMIN AND MINERAL SUPPLEMENT (MINERALS NOS/VITAMINS NOS) [Concomitant]

REACTIONS (8)
  - ACCIDENT [None]
  - DRUG INEFFECTIVE FOR UNAPPROVED INDICATION [None]
  - EYE ROLLING [None]
  - FALL [None]
  - LOSS OF CONSCIOUSNESS [None]
  - OBSESSIVE-COMPULSIVE DISORDER [None]
  - SOMNOLENCE [None]
  - UNEVALUABLE EVENT [None]
